FAERS Safety Report 7549333-0 (Version None)
Quarter: 2011Q2

REPORT INFORMATION
  Report Type: 
  Country: None (occurrence: None)
  Receive Date: 20110615
  Receipt Date: 20030127
  Transmission Date: 20111010
  Serious: Yes (Hospitalization)
  Sender: FDA-Public Use
  Company Number: PHEH2003US01045

PATIENT

DRUGS (3)
  1. ACTONEL [Concomitant]
  2. EXELON [Suspect]
     Indication: DEMENTIA ALZHEIMER'S TYPE
     Dosage: 6 MG, BID
     Route: 048
     Dates: start: 20010524, end: 20021211
  3. SEROQUEL [Concomitant]

REACTIONS (3)
  - DEHYDRATION [None]
  - INCOHERENT [None]
  - COLD SWEAT [None]
